FAERS Safety Report 23080740 (Version 1)
Quarter: 2023Q4

REPORT INFORMATION
  Report Type: Spontaneous
  Country: US (occurrence: None)
  Receive Date: 20231018
  Receipt Date: 20231018
  Transmission Date: 20240109
  Serious: Yes (Hospitalization)
  Sender: FDA-Public Use
  Company Number: None

PATIENT
  Age: 41 Year
  Sex: Male
  Weight: 100 kg

DRUGS (2)
  1. EMPAGLIFLOZIN [Suspect]
     Active Substance: EMPAGLIFLOZIN
     Dosage: FREQUENCY : DAILY;?
     Route: 048
     Dates: start: 20220803, end: 20221121
  2. METFORMIN HYDROCHLORIDE EXTENDED-RELEASE 500MG [Suspect]
     Active Substance: METFORMIN HYDROCHLORIDE
     Dosage: FREQUENCY : DAILY;?
     Route: 048

REACTIONS (4)
  - Euglycaemic diabetic ketoacidosis [None]
  - Sepsis [None]
  - Upper respiratory tract infection [None]
  - Beta haemolytic streptococcal infection [None]

NARRATIVE: CASE EVENT DATE: 20221121
